FAERS Safety Report 7559265-X (Version None)
Quarter: 2011Q2

REPORT INFORMATION
  Report Type: 
  Country: None (occurrence: None)
  Receive Date: 20110613
  Receipt Date: 20110527
  Transmission Date: 20111010
  Serious: Yes (Other)
  Sender: FDA-Public Use
  Company Number: AUR-APL-2011-01432

PATIENT
  Age: 48 Year
  Sex: Female
  Weight: 58.96 kg

DRUGS (6)
  1. TRAZODONE HCL [Concomitant]
  2. CITALOPRAM HYDROBROMIDE [Suspect]
     Indication: ANXIETY
     Dosage: 10 MG- DAILY- ORAL
     Route: 048
     Dates: start: 20100101
  3. CELEXA [Suspect]
     Indication: ANXIETY
  4. PREVACID [Concomitant]
  5. MENEST [Concomitant]
  6. PROPRANOLOL [Concomitant]

REACTIONS (8)
  - FATIGUE [None]
  - HYPERTENSION [None]
  - POOR QUALITY DRUG ADMINISTERED [None]
  - PRODUCT QUALITY ISSUE [None]
  - BLOOD TEST ABNORMAL [None]
  - HYPOTENSION [None]
  - TABLET PHYSICAL ISSUE [None]
  - PSYCHOMOTOR HYPERACTIVITY [None]
